FAERS Safety Report 9219364 (Version 1)
Quarter: 2013Q1

REPORT INFORMATION
  Report Type: Spontaneous
  Country: None (occurrence: None)
  Receive Date: 20120828
  Receipt Date: 20120828
  Transmission Date: 20140127
  Serious: Yes (Hospitalization)
  Sender: FDA-Public Use
  Company Number: 2011BH036169

PATIENT
  Age: 52 Year
  Sex: Female

DRUGS (1)
  1. IMMUNOGLOBULIN, NORMAL HUMAN LIQUID 0.2 G/ML SOLUTION FOR INJECTION VIAL (IMMUNOGLOBULIN, NORMAL HUMAN)(UKNOWN [Suspect]
     Dates: start: 1999

REACTIONS (4)
  - Chest pain [None]
  - Dyspnoea [None]
  - Cough [None]
  - Therapy cessation [None]
